FAERS Safety Report 10619049 (Version 1)
Quarter: 2014Q4

REPORT INFORMATION
  Report Type: Spontaneous
  Country: GB (occurrence: None)
  Receive Date: 20141126
  Receipt Date: 20141126
  Transmission Date: 20150529
  Serious: Yes (Other)
  Sender: FDA-Public Use
  Company Number: 2014-003373

PATIENT
  Age: 85 Year
  Sex: Male
  Weight: 65 kg

DRUGS (4)
  1. ACTONEL [Suspect]
     Active Substance: RISEDRONATE SODIUM
     Indication: PROPHYLAXIS
     Route: 048
     Dates: start: 20140620, end: 201408
  2. ADCAL D3 (CALCIUM CARBONATE, COLECALCIFEROL) [Concomitant]
  3. PREDNISOLONE. [Concomitant]
     Active Substance: PREDNISOLONE
  4. ACTONEL [Suspect]
     Active Substance: RISEDRONATE SODIUM
     Indication: OSTEOPOROSIS
     Route: 048
     Dates: start: 20140620, end: 201408

REACTIONS (3)
  - Neovascular age-related macular degeneration [None]
  - Choroidal neovascularisation [None]
  - Visual impairment [None]

NARRATIVE: CASE EVENT DATE: 201408
